FAERS Safety Report 6407231-X (Version None)
Quarter: 2009Q4

REPORT INFORMATION
  Report Type: 
  Country: None (occurrence: None)
  Receive Date: 20091020
  Receipt Date: 20091009
  Transmission Date: 20100525
  Serious: Yes (Other)
  Sender: FDA-Public Use
  Company Number: US-JNJFOC-20091000664

PATIENT
  Age: 3 Month
  Sex: Male

DRUGS (6)
  1. TYLENOL (CAPLET) [Suspect]
  2. TYLENOL (CAPLET) [Suspect]
     Indication: PYREXIA
     Dosage: UNSPECIFIED DOSE, EVERY 4-6 HOURS AS NEEDED. STOPPED USE 15-SEP-2009
  3. CONCENTRATED MOTRIN INFANTS' [Concomitant]
     Indication: PYREXIA
  4. RANITIDINE [Concomitant]
     Indication: GASTROOESOPHAGEAL REFLUX DISEASE
  5. UNSPECIFIED NEBULIZER [Concomitant]
     Indication: RESPIRATORY DISORDER
  6. ZYRTEC [Concomitant]
     Indication: MULTIPLE ALLERGIES

REACTIONS (5)
  - DEHYDRATION [None]
  - DYSPNOEA [None]
  - TRANSMISSION OF AN INFECTIOUS AGENT VIA A MEDICINAL PRODUCT [None]
  - UPPER RESPIRATORY TRACT INFECTION [None]
  - VOMITING [None]
